FAERS Safety Report 18104464 (Version 1)
Quarter: 2020Q3

REPORT INFORMATION
  Report Type: Spontaneous
  Country: US (occurrence: US)
  Receive Date: 20200803
  Receipt Date: 20200803
  Transmission Date: 20201103
  Serious: No
  Sender: FDA-Public Use
  Company Number: None

PATIENT
  Age: 76 Year
  Sex: Male

DRUGS (10)
  1. LORAZEPAM 0.5MG [Concomitant]
     Active Substance: LORAZEPAM
  2. ABIRATERONE. [Suspect]
     Active Substance: ABIRATERONE ACETATE
     Indication: PROSTATE CANCER
     Route: 048
     Dates: start: 20200709
  3. ALLOPURINOL 300MG [Concomitant]
     Active Substance: ALLOPURINOL
  4. ATENOLOL 25MG [Concomitant]
     Active Substance: ATENOLOL
  5. PANTOPRAZOLE 40MG [Concomitant]
     Active Substance: PANTOPRAZOLE SODIUM
  6. PRAVASTATIN. [Concomitant]
     Active Substance: PRAVASTATIN
  7. XARELTO [Concomitant]
     Active Substance: RIVAROXABAN
  8. HYDROXYZINE 10MG [Concomitant]
  9. ABIRATERONE 250MG [Concomitant]
     Active Substance: ABIRATERONE
  10. PREDNISONE 5MG [Concomitant]
     Active Substance: PREDNISONE

REACTIONS (2)
  - Hot flush [None]
  - Fatigue [None]

NARRATIVE: CASE EVENT DATE: 20200709
